FAERS Safety Report 7027188-0 (Version None)
Quarter: 2010Q4

REPORT INFORMATION
  Report Type: 
  Country: None (occurrence: None)
  Receive Date: 20101004
  Receipt Date: 20100921
  Transmission Date: 20110411
  Serious: Yes (Hospitalization)
  Sender: FDA-Public Use
  Company Number: US-NOVEN-10US001319

PATIENT
  Sex: Female
  Weight: 49.887 kg

DRUGS (8)
  1. LITHOBID [Suspect]
     Indication: BIPOLAR DISORDER
     Dosage: UNK
     Dates: start: 20050101
  2. LITHOBID [Suspect]
     Dosage: 900 MG, QD
     Route: 048
     Dates: start: 20080201
  3. LITHOBID [Suspect]
     Dosage: 750 MG QD (300 MG PM AND 450 MG PM)UNK
     Dates: start: 20090901, end: 20100201
  4. LITHOBID [Suspect]
     Dosage: UNK
     Dates: start: 20100201, end: 20100301
  5. LITHOBID [Suspect]
     Dosage: 750 MG QD (300 MG PM AND 450 MG PM)
     Dates: start: 20100401, end: 20100601
  6. LITHOBID [Suspect]
     Dosage: 300 MG, BID
     Dates: start: 20100101
  7. EFFEXOR [Concomitant]
     Indication: BIPOLAR DISORDER
     Dosage: 75 MG, QD
     Route: 048
     Dates: start: 20050101
  8. CLONAZEPAM [Concomitant]
     Dosage: .5 MG, BID

REACTIONS (5)
  - BENIGN NEOPLASM OF THYROID GLAND [None]
  - DECREASED APPETITE [None]
  - DIARRHOEA [None]
  - DRUG ADMINISTRATION ERROR [None]
  - WEIGHT DECREASED [None]
